FAERS Safety Report 23973474 (Version 1)
Quarter: 2024Q2

REPORT INFORMATION
  Report Type: Report from Study
  Country: GB (occurrence: GB)
  Receive Date: 20240613
  Receipt Date: 20240613
  Transmission Date: 20240716
  Serious: Yes (Other)
  Sender: FDA-Public Use
  Company Number: GB-002147023-NVSC2024GB097973

PATIENT
  Sex: Female

DRUGS (2)
  1. KESIMPTA [Suspect]
     Active Substance: OFATUMUMAB
     Indication: Relapsing-remitting multiple sclerosis
     Dosage: 20 MG, QW
     Route: 058
     Dates: start: 20240430
  2. KESIMPTA [Suspect]
     Active Substance: OFATUMUMAB
     Indication: Multiple sclerosis
     Dosage: 20 MG, QMO (WEEKLY FOR THE 1S MONTH (NOT WEEK 3))
     Route: 058
     Dates: start: 20240430

REACTIONS (7)
  - Lower respiratory tract infection [Recovered/Resolved]
  - Fatigue [Recovered/Resolved]
  - Hangover [Recovered/Resolved]
  - Fatigue [Unknown]
  - Paraesthesia [Recovered/Resolved]
  - Productive cough [Unknown]
  - Inappropriate schedule of product administration [Unknown]

NARRATIVE: CASE EVENT DATE: 20240501
